FAERS Safety Report 23836096 (Version 4)
Quarter: 2024Q4

REPORT INFORMATION
  Report Type: Spontaneous
  Country: US (occurrence: US)
  Receive Date: 20240509
  Receipt Date: 20241226
  Transmission Date: 20250115
  Serious: No
  Sender: BRISTOL-MYERS SQUIBB COMPANY
  Company Number: US-BRISTOL-MYERS SQUIBB COMPANY-2024-071952

PATIENT
  Age: 81 Year
  Sex: Female
  Weight: 83.46 kg

DRUGS (1)
  1. REVLIMID [Suspect]
     Active Substance: LENALIDOMIDE
     Indication: Plasma cell myeloma
     Dosage: FREQUENCY: ONCE DAILY, DAYS 1-28.
     Route: 048

REACTIONS (5)
  - Diarrhoea [Unknown]
  - Limb mass [Unknown]
  - Headache [Unknown]
  - Hypoaesthesia [Unknown]
  - Urinary tract infection [Unknown]
